FAERS Safety Report 9669292 (Version 1)
Quarter: 2013Q4

REPORT INFORMATION
  Report Type: Spontaneous
  Country: US (occurrence: US)
  Receive Date: 20131105
  Receipt Date: 20131105
  Transmission Date: 20140711
  Serious: Yes (Death, Hospitalization)
  Sender: FDA-Public Use
  Company Number: US-ASTRAZENECA-2013SE80770

PATIENT
  Age: 73 Year
  Sex: Male

DRUGS (3)
  1. BRILINTA [Suspect]
     Indication: THROMBOSIS IN DEVICE
     Route: 048
  2. ASPIRIN [Concomitant]
  3. MANY OTHER MEDS [Concomitant]

REACTIONS (5)
  - Death [Fatal]
  - Acute myocardial infarction [Unknown]
  - Coronary artery occlusion [Unknown]
  - Thrombosis in device [Unknown]
  - Drug dose omission [Unknown]
